FAERS Safety Report 4714616-6 (Version None)
Quarter: 2005Q3

REPORT INFORMATION
  Report Type: 
  Country: None (occurrence: None)
  Receive Date: 20050714
  Receipt Date: 20050714
  Transmission Date: 20060218
  Serious: No
  Sender: FDA-Public Use
  Company Number: None

PATIENT
  Age: 65 Year
  Sex: Female
  Weight: 51.7101 kg

DRUGS (5)
  1. FOSAMAX [Suspect]
     Indication: OSTEOPOROSIS
     Dosage: 1 PER DAY ONE YEAR APPROX MID 1990'S
     Dates: start: 19900101
  2. THYROID TAB [Concomitant]
  3. SYNTHYROID [Concomitant]
  4. ENTHYROID [Concomitant]
  5. HONEYCOMBED [Concomitant]

REACTIONS (3)
  - DECREASED ACTIVITY [None]
  - GASTROOESOPHAGEAL REFLUX DISEASE [None]
  - OESOPHAGEAL DISORDER [None]
